FAERS Safety Report 25291346 (Version 2)
Quarter: 2025Q2

REPORT INFORMATION
  Report Type: Spontaneous
  Country: US (occurrence: US)
  Receive Date: 20250510
  Receipt Date: 20250629
  Transmission Date: 20250716
  Serious: No
  Sender: SANOFI AVENTIS
  Company Number: US-SA-2025SA120321

PATIENT
  Sex: Female
  Weight: 110.2 kg

DRUGS (7)
  1. DUPIXENT [Suspect]
     Active Substance: DUPILUMAB
     Indication: Dermatitis atopic
     Dosage: 300 MG, QOW
     Route: 058
  2. BETAMETHASONE DIPROPIONATE [Concomitant]
     Active Substance: BETAMETHASONE DIPROPIONATE
  3. CLOBETASOL [Concomitant]
     Active Substance: CLOBETASOL
  4. DOXYCYCLINE [Concomitant]
     Active Substance: DOXYCYCLINE
  5. VITAMINS NOS [Concomitant]
     Active Substance: VITAMINS
  6. TACROLIMUS [Concomitant]
     Active Substance: TACROLIMUS
  7. TYLENOL [Concomitant]
     Active Substance: ACETAMINOPHEN

REACTIONS (2)
  - Lip dry [Unknown]
  - Dry mouth [Unknown]
